FAERS Safety Report 11519842 (Version 1)
Quarter: 2015Q3

REPORT INFORMATION
  Report Type: Spontaneous
  Country: CA (occurrence: CA)
  Receive Date: 20150918
  Receipt Date: 20150918
  Transmission Date: 20151125
  Serious: Yes (Death)
  Sender: FDA-Public Use
  Company Number: CA-TEVA-593444ACC

PATIENT
  Age: 64 Year
  Sex: Male
  Weight: 98.06 kg

DRUGS (24)
  1. ALENDRONATE [Concomitant]
     Active Substance: ALENDRONATE SODIUM
  2. DIMENHYDRINATE. [Concomitant]
     Active Substance: DIMENHYDRINATE
  3. EPREX STERILE SOLUTION [Concomitant]
     Route: 042
  4. FERROUS GLUCONATE [Concomitant]
     Active Substance: FERROUS GLUCONATE
  5. PANTOPRAZOLE [Concomitant]
     Active Substance: PANTOPRAZOLE SODIUM
  6. ACETAMINOPHEN. [Concomitant]
     Active Substance: ACETAMINOPHEN
  7. FENOFIBRATE. [Concomitant]
     Active Substance: FENOFIBRATE
  8. MIDODRINE [Concomitant]
     Active Substance: MIDODRINE
  9. PAROXETINE [Concomitant]
     Active Substance: PAROXETINE\PAROXETINE HYDROCHLORIDE
  10. TYLENOL WITH CODEINE [Concomitant]
     Active Substance: ACETAMINOPHEN\CODEINE PHOSPHATE
  11. AMIODARONE [Suspect]
     Active Substance: AMIODARONE
     Indication: CARDIAC PACEMAKER INSERTION
     Dosage: 200 MILLIGRAM DAILY;
     Route: 048
  12. AMIODARONE [Suspect]
     Active Substance: AMIODARONE
     Indication: ATRIAL FIBRILLATION
  13. DIPHENHYDRAMINE. [Concomitant]
     Active Substance: DIPHENHYDRAMINE
  14. FUROSEMIDE. [Concomitant]
     Active Substance: FUROSEMIDE
  15. REPLAVITE [Concomitant]
  16. CALCIUM CARBONATE. [Concomitant]
     Active Substance: CALCIUM CARBONATE
  17. HYDROMORPHONE [Concomitant]
     Active Substance: HYDROMORPHONE
  18. ONE ALPHA [Concomitant]
     Active Substance: ALFACALCIDOL
  19. SEVELAMER [Concomitant]
     Active Substance: SEVELAMER
  20. BUDESONIDE. [Concomitant]
     Active Substance: BUDESONIDE
  21. FLUTICASONE [Concomitant]
     Active Substance: FLUTICASONE\FLUTICASONE PROPIONATE
  22. ROSUVASTATIN [Concomitant]
     Active Substance: ROSUVASTATIN
  23. BETAHISTINE [Concomitant]
     Active Substance: BETAHISTINE
  24. INSULIN HUMAN [Concomitant]
     Active Substance: INSULIN HUMAN

REACTIONS (3)
  - Hepatic failure [Fatal]
  - International normalised ratio increased [Fatal]
  - Non-alcoholic steatohepatitis [Fatal]
